FAERS Safety Report 21350425 (Version 3)
Quarter: 2022Q4

REPORT INFORMATION
  Report Type: Report from Study
  Country: IT (occurrence: IT)
  Receive Date: 20220919
  Receipt Date: 20221010
  Transmission Date: 20230113
  Serious: Yes (Hospitalization)
  Sender: FDA-Public Use
  Company Number: IT-BAYER-2022A126710

PATIENT
  Age: 73 Year
  Sex: Female

DRUGS (22)
  1. COPANLISIB [Suspect]
     Active Substance: COPANLISIB
     Indication: Diffuse large B-cell lymphoma recurrent
     Dosage: 60 MG (28 DAY CYCLE)
     Dates: start: 20220811, end: 20220818
  2. RITUXIMAB [Suspect]
     Active Substance: RITUXIMAB
     Indication: Diffuse large B-cell lymphoma recurrent
     Dosage: 375.0 MG/M2  (28 DAY CYCLE)
     Route: 042
     Dates: start: 20220812, end: 20220812
  3. BENDAMUSTINE [Suspect]
     Active Substance: BENDAMUSTINE
     Indication: Diffuse large B-cell lymphoma recurrent
     Dosage: 90 MG/M2  (29 DAY CYCLE)
     Route: 042
     Dates: start: 20220812, end: 20220813
  4. NEBIVOLOL [Concomitant]
     Active Substance: NEBIVOLOL
     Indication: Hypertension
     Dosage: UNK
  5. CHOLECALCIFEROL [Concomitant]
     Active Substance: CHOLECALCIFEROL
     Indication: Osteoporosis
     Dosage: UNK
  6. ENOXAPARIN [Concomitant]
     Active Substance: ENOXAPARIN
     Dosage: 0.4 1 FL SC QD
     Dates: start: 20220706, end: 20220825
  7. PANTOPRAZOLE [Concomitant]
     Active Substance: PANTOPRAZOLE
     Dosage: 20 MG, QD
     Dates: start: 20220704
  8. ACYCLOVIR [Concomitant]
     Active Substance: ACYCLOVIR
     Dosage: 400 MG, QD
     Dates: start: 20220811, end: 20220825
  9. SULFAMETHOXAZOLE\TRIMETHOPRIM [Concomitant]
     Active Substance: SULFAMETHOXAZOLE\TRIMETHOPRIM
     Indication: Antifungal prophylaxis
     Dosage: 1 DF, TIW
     Dates: start: 20220811, end: 20220825
  10. FOLIC ACID [Concomitant]
     Active Substance: FOLIC ACID
     Dosage: 5 MG, TIW
     Dates: start: 20220811
  11. FEBUXOSTAT [Concomitant]
     Active Substance: FEBUXOSTAT
     Dosage: 80 MG, QD
     Dates: start: 20220811
  12. HYDROCHLOROTHIAZIDE\OLMESARTAN MEDOXOMIL [Concomitant]
     Active Substance: HYDROCHLOROTHIAZIDE\OLMESARTAN MEDOXOMIL
     Dosage: 1 DF (20MG+25MG), QD
     Dates: start: 20220810
  13. ESCITALOPRAM [Concomitant]
     Active Substance: ESCITALOPRAM OXALATE
     Dosage: 10 MG, QD
     Dates: start: 20220818
  14. SULPIRIDE [Concomitant]
     Active Substance: SULPIRIDE
     Dosage: 10 DROP, TID
     Dates: start: 20220822
  15. PREDNISONE [Concomitant]
     Active Substance: PREDNISONE
     Dosage: 25 MG 1/4 CPS QD
     Dates: start: 20220822, end: 20220822
  16. PREDNISONE [Concomitant]
     Active Substance: PREDNISONE
     Dosage: 25MG 1/2 CPS
     Dates: start: 20220829, end: 20220830
  17. PREDNISONE [Concomitant]
     Active Substance: PREDNISONE
     Dosage: 25 MG, QD
     Dates: start: 20220823, end: 20220828
  18. CETIRIZINE [Concomitant]
     Active Substance: CETIRIZINE HYDROCHLORIDE
     Dosage: 10 MG, QD
     Dates: start: 20220822
  19. AUGMENTIN [Concomitant]
     Active Substance: AMOXICILLIN\CLAVULANATE POTASSIUM
     Dosage: 1 G, TID
     Dates: start: 20220823, end: 20220831
  20. APIDRA [Concomitant]
     Active Substance: INSULIN GLULISINE
     Dosage: 1 FL 4UI + 1 FL 5 UI+  1 FL 5UI, QD
     Route: 058
     Dates: start: 20220825
  21. ROSUVASTATIN [Concomitant]
     Active Substance: ROSUVASTATIN
     Dosage: 20 MG
     Dates: start: 20200330
  22. HYDROCHLOROTHIAZIDE\OLMESARTAN MEDOXOMIL [Concomitant]
     Active Substance: HYDROCHLOROTHIAZIDE\OLMESARTAN MEDOXOMIL
     Dosage: 25 MG
     Dates: start: 20200330

REACTIONS (1)
  - Drug hypersensitivity [Recovered/Resolved]

NARRATIVE: CASE EVENT DATE: 20220831
